FAERS Safety Report 6398079-3 (Version None)
Quarter: 2009Q4

REPORT INFORMATION
  Report Type: 
  Country: None (occurrence: None)
  Receive Date: 20091013
  Receipt Date: 20090825
  Transmission Date: 20100525
  Serious: No
  Sender: FDA-Public Use
  Company Number: US-BAYER-200931624NA

PATIENT
  Age: 29 Year
  Sex: Female
  Weight: 64 kg

DRUGS (2)
  1. MIRENA [Suspect]
     Indication: CONTRACEPTION
     Dosage: CONTINUOUS
     Route: 015
     Dates: start: 20040101
  2. MIRENA [Suspect]
     Dosage: CONTINUOUS
     Route: 015
     Dates: start: 20090301

REACTIONS (8)
  - AMENORRHOEA [None]
  - CHEST PAIN [None]
  - FATIGUE [None]
  - IRRITABILITY [None]
  - LIBIDO DECREASED [None]
  - PALPITATIONS [None]
  - PROCEDURAL PAIN [None]
  - WEIGHT INCREASED [None]
